FAERS Safety Report 25670185 (Version 2)
Quarter: 2025Q3

REPORT INFORMATION
  Report Type: Spontaneous
  Country: US (occurrence: US)
  Receive Date: 20250812
  Receipt Date: 20250812
  Transmission Date: 20251020
  Serious: Yes (Other)
  Sender: LUPIN
  Company Number: US-LUPIN PHARMACEUTICALS INC.-2025-06937

PATIENT
  Age: 50 Year

DRUGS (2)
  1. TOLVAPTAN [Suspect]
     Active Substance: TOLVAPTAN
     Indication: Product used for unknown indication
     Dosage: 45 MG, BID
  2. TOLVAPTAN [Suspect]
     Active Substance: TOLVAPTAN
     Indication: Product used for unknown indication
     Dosage: 15 MG, BID

REACTIONS (1)
  - End stage renal disease [Unknown]
